FAERS Safety Report 7760356-9 (Version None)
Quarter: 2011Q3

REPORT INFORMATION
  Report Type: 
  Country: None (occurrence: None)
  Receive Date: 20110919
  Receipt Date: 20110906
  Transmission Date: 20111222
  Serious: Yes (Hospitalization, Other)
  Sender: FDA-Public Use
  Company Number: PHHY2011US79560

PATIENT
  Sex: Male

DRUGS (1)
  1. MYFORTIC [Suspect]
     Indication: IMMUNOSUPPRESSION
     Dosage: 720 MG, BID
     Dates: start: 20090910

REACTIONS (14)
  - ESCHERICHIA SEPSIS [None]
  - FULL BLOOD COUNT DECREASED [None]
  - CHILLS [None]
  - HYPERGLYCAEMIA [None]
  - ESCHERICHIA URINARY TRACT INFECTION [None]
  - TOXICOLOGIC TEST ABNORMAL [None]
  - BACK PAIN [None]
  - TREMOR [None]
  - HYPONATRAEMIA [None]
  - RENAL FAILURE CHRONIC [None]
  - GLYCOSYLATED HAEMOGLOBIN INCREASED [None]
  - DYSURIA [None]
  - URINE ODOUR ABNORMAL [None]
  - DEHYDRATION [None]
